FAERS Safety Report 9866281 (Version 1)
Quarter: 2014Q1

REPORT INFORMATION
  Report Type: Spontaneous
  Country: US (occurrence: US)
  Receive Date: 20140203
  Receipt Date: 20140203
  Transmission Date: 20141002
  Serious: Yes (Other)
  Sender: FDA-Public Use
  Company Number: PHHY2014US010556

PATIENT
  Sex: Female

DRUGS (23)
  1. GILENYA [Suspect]
     Indication: MULTIPLE SCLEROSIS RELAPSE
     Dosage: 0.5 MG, QD
     Route: 048
     Dates: start: 20110105, end: 20131218
  2. ASPIRIN [Concomitant]
     Dosage: 325 MG, UNK
     Route: 048
  3. CYCLOBENZAPRINE [Concomitant]
     Dates: start: 20130701
  4. CYMBALTA [Concomitant]
     Dates: start: 20130805
  5. DIAZEPAM [Concomitant]
     Dates: start: 20130701
  6. DOXYCYCLINE MONOHYDRATE [Concomitant]
  7. MELOXICAM [Concomitant]
     Dates: start: 20131105
  8. TRAMADOL HCL [Concomitant]
     Dates: start: 20121116
  9. VITAMIN B12 [Concomitant]
  10. PSEUDOEPHEDRINE HYDROCHLORIDE [Concomitant]
  11. VITAMIN B COMPLEX [Concomitant]
     Dates: start: 20131218
  12. DIPHENHYDRAMINE HCL [Concomitant]
  13. CHLORPHENIRAMINE MALEATE [Concomitant]
  14. PHENYLEPHRINE HCL [Concomitant]
  15. POLYETHYLENE GLYCOL [Concomitant]
  16. VITAMIN D3 [Concomitant]
  17. FLEXERIL [Concomitant]
     Dates: start: 20131219
  18. MIRALAX [Concomitant]
     Dates: start: 20131219
  19. BENADRYL ITCH [Concomitant]
     Indication: PRURITUS
     Dates: start: 20131218
  20. ZOFRAN [Concomitant]
     Dates: start: 20131218
  21. XANAX [Concomitant]
     Dates: start: 20131218
  22. LORTAB [Concomitant]
     Dates: start: 20131218
  23. VITAMIN D [Concomitant]

REACTIONS (23)
  - Pseudopapilloedema [Unknown]
  - Optic neuritis [Unknown]
  - Optic atrophy [Unknown]
  - Visual field defect [Unknown]
  - Vision blurred [Unknown]
  - CD4 lymphocytes decreased [Unknown]
  - Fatigue [Unknown]
  - Muscle spasms [Unknown]
  - Muscular weakness [Unknown]
  - Pain in extremity [Unknown]
  - Muscle twitching [Unknown]
  - Pain [Unknown]
  - Poor quality sleep [Unknown]
  - Nausea [Unknown]
  - Vomiting [Unknown]
  - Arthralgia [Unknown]
  - Abdominal discomfort [Unknown]
  - Bladder discomfort [Unknown]
  - Blood glucose abnormal [Unknown]
  - Blood pressure increased [Unknown]
  - Headache [Unknown]
  - Diarrhoea [Unknown]
  - Dyspnoea [Unknown]
